FAERS Safety Report 8794252 (Version 3)
Quarter: 2012Q4

REPORT INFORMATION
  Report Type: 
  Country: DE (occurrence: DE)
  Receive Date: 20120918
  Receipt Date: 20121025
  Transmission Date: 20130627
  Serious: Yes (Other)
  Sender: FDA-Public Use
  Company Number: DE-AMGEN-DEUSP2012058461

PATIENT
  Age: 68 Year
  Sex: Female
  Weight: 53 kg

DRUGS (5)
  1. PROLIA [Suspect]
     Indication: OSTEOPOROSIS POSTMENOPAUSAL
     Dosage: UNK
     Dates: start: 20120730
  2. FORADIL [Concomitant]
     Indication: CHRONIC OBSTRUCTIVE PULMONARY DISEASE
     Dosage: UNK UNK, bid
     Route: 055
  3. SPIRIVA [Concomitant]
     Indication: CHRONIC OBSTRUCTIVE PULMONARY DISEASE
     Route: 055
  4. RAMIPRIL [Concomitant]
     Indication: RESPIRATORY RATE DECREASED
     Route: 048
  5. NEVIBOLOL DCI [Concomitant]
     Indication: RESPIRATORY RATE DECREASED
     Route: 048

REACTIONS (3)
  - Gastrointestinal disorder [Unknown]
  - Defaecation urgency [Unknown]
  - Mucous stools [Unknown]
